FAERS Safety Report 7550460-2 (Version None)
Quarter: 2011Q2

REPORT INFORMATION
  Report Type: 
  Country: None (occurrence: None)
  Receive Date: 20110615
  Receipt Date: 20110524
  Transmission Date: 20111010
  Serious: No
  Sender: FDA-Public Use
  Company Number: US-BAUSCH-2011BL003472

PATIENT
  Age: 86 Year
  Sex: Male

DRUGS (7)
  1. PRED FORTE [Concomitant]
     Indication: PREOPERATIVE CARE
     Route: 047
     Dates: start: 20110502
  2. POLYTRIM [Concomitant]
     Indication: PREOPERATIVE CARE
     Route: 047
     Dates: start: 20110502, end: 20110512
  3. E-MYCIN [Concomitant]
     Indication: PREOPERATIVE CARE
     Route: 047
     Dates: start: 20110502, end: 20110505
  4. BESIVANCE [Suspect]
     Indication: POSTOPERATIVE CARE
     Route: 047
     Dates: start: 20110502, end: 20110509
  5. BESIVANCE [Suspect]
     Indication: PREOPERATIVE CARE
     Route: 047
     Dates: start: 20110502, end: 20110509
  6. DICLOFENAC SODIUM [Concomitant]
     Indication: PREOPERATIVE CARE
     Route: 047
     Dates: start: 20110502, end: 20110509
  7. BESIVANCE [Suspect]
     Indication: OFF LABEL USE
     Route: 047
     Dates: start: 20110502, end: 20110509

REACTIONS (1)
  - VISION BLURRED [None]
